FAERS Safety Report 19003635 (Version 1)
Quarter: 2021Q1

REPORT INFORMATION
  Report Type: Spontaneous
  Country: US (occurrence: US)
  Receive Date: 20210312
  Receipt Date: 20210312
  Transmission Date: 20210420
  Serious: No
  Sender: FDA-Public Use
  Company Number: US-BAYER-2021-103870

PATIENT
  Age: 78 Year
  Sex: Female

DRUGS (1)
  1. ALEVE PM [Suspect]
     Active Substance: DIPHENHYDRAMINE HYDROCHLORIDE\NAPROXEN SODIUM
     Indication: PAIN
     Dosage: 0.5 DF
     Route: 048
     Dates: end: 20210308

REACTIONS (3)
  - Initial insomnia [Unknown]
  - Incorrect dose administered [Unknown]
  - Middle insomnia [Unknown]
